FAERS Safety Report 6587700-2 (Version None)
Quarter: 2010Q1

REPORT INFORMATION
  Report Type: 
  Country: None (occurrence: None)
  Receive Date: 20100218
  Receipt Date: 20090810
  Transmission Date: 20100710
  Serious: No
  Sender: FDA-Public Use
  Company Number: A0774348A

PATIENT
  Age: 83 Year
  Sex: Female

DRUGS (9)
  1. COREG CR [Suspect]
     Indication: HYPERTENSION
     Dosage: 20MG PER DAY
     Route: 048
     Dates: start: 20070101
  2. COREG [Suspect]
     Indication: HYPERTENSION
     Dosage: 12.5MG PER DAY
     Route: 048
     Dates: start: 20050801, end: 20060101
  3. BENICAR [Suspect]
     Indication: DRUG USE FOR UNKNOWN INDICATION
     Dosage: 40MG PER DAY
     Route: 048
     Dates: end: 20090502
  4. TRIAMTERENE [Suspect]
     Indication: DRUG USE FOR UNKNOWN INDICATION
     Dosage: 37.5MG PER DAY
     Route: 048
     Dates: end: 20090502
  5. VERPAMIL [Suspect]
     Indication: DRUG USE FOR UNKNOWN INDICATION
     Dosage: 240MG PER DAY
     Route: 048
     Dates: start: 20090416, end: 20090502
  6. VITAMIN D [Concomitant]
  7. VITAMIN B COMPLEX CAP [Concomitant]
  8. VITAMIN C [Concomitant]
  9. ALEVE (CAPLET) [Concomitant]

REACTIONS (5)
  - FATIGUE [None]
  - MUSCLE SPASMS [None]
  - PAIN [None]
  - SKIN EXFOLIATION [None]
  - URTICARIA [None]
